FAERS Safety Report 11545007 (Version 1)
Quarter: 2015Q3

REPORT INFORMATION
  Report Type: Spontaneous
  Country: NL (occurrence: NL)
  Receive Date: 20150924
  Receipt Date: 20150924
  Transmission Date: 20151125
  Serious: Yes (Hospitalization)
  Sender: FDA-Public Use
  Company Number: NL-TOLMAR, INC.-2015NL008517

PATIENT
  Age: 82 Year
  Sex: Male

DRUGS (3)
  1. ELIGARD [Suspect]
     Active Substance: LEUPROLIDE ACETATE
     Dosage: 22.5 MG, CYCLIC, Q3MONTHS
     Route: 058
     Dates: start: 20150916
  2. ELIGARD [Suspect]
     Active Substance: LEUPROLIDE ACETATE
     Dosage: 22.5 MG, CYCLIC, Q3MONTHS
     Route: 058
     Dates: start: 20150619
  3. ELIGARD [Suspect]
     Active Substance: LEUPROLIDE ACETATE
     Indication: PROSTATE CANCER
     Dosage: 22.5 MG, CYCLIC, Q3MONTHS
     Route: 058
     Dates: start: 20140910

REACTIONS (1)
  - Gastrointestinal haemorrhage [Recovered/Resolved]

NARRATIVE: CASE EVENT DATE: 20150909
